FAERS Safety Report 10225760 (Version 2)
Quarter: 2014Q2

REPORT INFORMATION
  Report Type: Spontaneous
  Country: US (occurrence: US)
  Receive Date: 20140609
  Receipt Date: 20140609
  Transmission Date: 20141212
  Serious: Yes (Hospitalization, Other)
  Sender: FDA-Public Use
  Company Number: US-ASTELLAS-2013US006843

PATIENT
  Age: 51 Year
  Sex: Female

DRUGS (1)
  1. PROGRAF [Suspect]
     Indication: RENAL TRANSPLANT
     Route: 048
     Dates: start: 20030918, end: 201303

REACTIONS (6)
  - Transplant failure [Unknown]
  - Lung adenocarcinoma [Unknown]
  - Chronic allograft nephropathy [Unknown]
  - Nephropathy [Unknown]
  - Aspergillus infection [Unknown]
  - Renal impairment [Unknown]
